FAERS Safety Report 12256523 (Version 3)
Quarter: 2019Q4

REPORT INFORMATION
  Report Type: Spontaneous
  Country: US (occurrence: US)
  Receive Date: 20160412
  Receipt Date: 20191113
  Transmission Date: 20200122
  Serious: Yes (Other)
  Sender: FDA-Public Use
  Company Number: US-PFIZER INC-2016204662

PATIENT
  Age: 63 Year
  Sex: Male

DRUGS (5)
  1. VARDENAFIL [Concomitant]
     Active Substance: VARDENAFIL HYDROCHLORIDE
     Indication: ERECTILE DYSFUNCTION
     Dosage: 20 MG, 1X/DAY
     Dates: start: 20060328, end: 20160505
  2. VIAGRA [Suspect]
     Active Substance: SILDENAFIL CITRATE
     Dosage: 100 MG, 1X/DAY (ORAL 1 HOUR BEFORE SEXUAL ACTIVITY)
     Route: 048
     Dates: start: 20030624
  3. VIAGRA [Suspect]
     Active Substance: SILDENAFIL CITRATE
     Dosage: 100 MG, AS NEEDED
     Route: 048
     Dates: start: 20030724, end: 20060119
  4. VIAGRA [Suspect]
     Active Substance: SILDENAFIL CITRATE
     Dosage: 100 MG, AS NEEDED
     Route: 048
     Dates: start: 20091221, end: 20150422
  5. VIAGRA [Suspect]
     Active Substance: SILDENAFIL CITRATE
     Indication: ERECTILE DYSFUNCTION
     Dosage: UNK, REGULARLY
     Route: 048
     Dates: start: 200306, end: 201506

REACTIONS (3)
  - Malignant melanoma [Unknown]
  - Malignant melanoma stage I [Unknown]
  - Nodular melanoma [Unknown]

NARRATIVE: CASE EVENT DATE: 20070910
